FAERS Safety Report 8806637 (Version 1)
Quarter: 2012Q4

REPORT INFORMATION
  Report Type: Spontaneous
  Country: US (occurrence: None)
  Receive Date: 20120920
  Receipt Date: 20120920
  Transmission Date: 20130627
  Serious: No
  Sender: FDA-Public Use
  Company Number: None

PATIENT
  Age: 55 Year
  Sex: Female

DRUGS (1)
  1. ZOMETA [Suspect]
     Indication: MALIGNANT BREAST NEOPLASM
     Route: 042
     Dates: start: 20101002, end: 20120917

REACTIONS (2)
  - Foot fracture [None]
  - Pathological fracture [None]
